FAERS Safety Report 14894898 (Version 1)
Quarter: 2018Q2

REPORT INFORMATION
  Report Type: Spontaneous
  Country: PL (occurrence: PL)
  Receive Date: 20180515
  Receipt Date: 20180515
  Transmission Date: 20180711
  Serious: Yes (Other)
  Sender: FDA-Public Use
  Company Number: PL-ACCORD-066924

PATIENT
  Age: 59 Year
  Sex: Male
  Weight: 99 kg

DRUGS (1)
  1. TEMOZOLOMIDE ACCORD [Suspect]
     Active Substance: TEMOZOLOMIDE
     Indication: BRAIN NEOPLASM MALIGNANT
     Route: 048
     Dates: start: 20170316

REACTIONS (3)
  - Hyperhidrosis [Recovering/Resolving]
  - Epilepsy [Recovering/Resolving]
  - Asthenia [Recovering/Resolving]
